FAERS Safety Report 8962134 (Version 1)
Quarter: 2012Q4

REPORT INFORMATION
  Report Type: 
  Country: US (occurrence: US)
  Receive Date: 20121212
  Receipt Date: 20121212
  Transmission Date: 20130627
  Serious: No
  Sender: FDA-Public Use
  Company Number: US-009507513-1212USA004047

PATIENT

DRUGS (1)
  1. PROVENTIL [Suspect]
     Dosage: 90 mcg/*2 puffs, q6h as needed
     Route: 048
     Dates: start: 20111210

REACTIONS (3)
  - Product quality control issue [Unknown]
  - No adverse event [Unknown]
  - Drug dose omission [Unknown]
